FAERS Safety Report 8863405 (Version 1)
Quarter: 2012Q4

REPORT INFORMATION
  Report Type: Report from Study
  Country: SE (occurrence: SE)
  Receive Date: 20121024
  Receipt Date: 20121024
  Transmission Date: 20130627
  Serious: Yes (Life-Threatening, Hospitalization)
  Sender: FDA-Public Use
  Company Number: SE-TEVA-2011006276

PATIENT
  Age: 83 Year
  Sex: Male
  Weight: 87.85 kg

DRUGS (7)
  1. BENDAMUSTINE HCL [Suspect]
     Indication: NON-HODGKIN^S LYMPHOMA
     Route: 042
     Dates: start: 20110517, end: 20111004
  2. OBINUTUZUMAB [Suspect]
     Indication: NON-HODGKIN^S LYMPHOMA
     Route: 042
     Dates: start: 20110517
  3. NITROMEX [Concomitant]
  4. METOPROLOL [Concomitant]
  5. AMLODIPINE [Concomitant]
  6. NITROLINGUAL-SPRAY [Concomitant]
  7. TROMBYL [Concomitant]

REACTIONS (2)
  - Myocardial infarction [Recovered/Resolved]
  - Pyrexia [Recovered/Resolved]
